FAERS Safety Report 17427516 (Version 1)
Quarter: 2020Q1

REPORT INFORMATION
  Report Type: Spontaneous
  Country: US (occurrence: US)
  Receive Date: 20200217
  Receipt Date: 20200217
  Transmission Date: 20200409
  Serious: Yes (Hospitalization)
  Sender: FDA-Public Use
  Company Number: US-ASTRAZENECA-2020SE22661

PATIENT
  Age: 1 Year
  Sex: Male

DRUGS (7)
  1. PULMICORT TURBUHALER [Suspect]
     Active Substance: BUDESONIDE
     Dosage: UNKNOWN
     Route: 055
  2. SYNAGIS [Suspect]
     Active Substance: PALIVIZUMAB
     Indication: IMMUNISATION
     Route: 030
  3. SYNAGIS [Suspect]
     Active Substance: PALIVIZUMAB
     Indication: IMMUNISATION
     Route: 030
  4. SYNAGIS [Suspect]
     Active Substance: PALIVIZUMAB
     Indication: LOW BIRTH WEIGHT BABY
     Route: 030
  5. SYNAGIS [Suspect]
     Active Substance: PALIVIZUMAB
     Indication: LOW BIRTH WEIGHT BABY
     Route: 030
  6. VITAMIN C [Concomitant]
     Active Substance: ASCORBIC ACID
     Dosage: UNKNOWN
     Route: 065
  7. ALBUTEROL SULFATE. [Concomitant]
     Active Substance: ALBUTEROL SULFATE
     Dosage: UNKNOWN
     Route: 065

REACTIONS (2)
  - Nasopharyngitis [Unknown]
  - Rhinovirus infection [Unknown]
